FAERS Safety Report 17455215 (Version 1)
Quarter: 2020Q1

REPORT INFORMATION
  Report Type: Spontaneous
  Country: US (occurrence: US)
  Receive Date: 20200211
  Receipt Date: 20200211
  Transmission Date: 20200409
  Serious: Yes (Hospitalization)
  Sender: FDA-Public Use
  Company Number: None

PATIENT
  Sex: Female

DRUGS (6)
  1. BARTONELLA HOMOCHORD [HOMEOPATHICS] [Suspect]
     Active Substance: HOMEOPATHICS
  2. BORRELIA BABESIA SYMPTOM RELIEF KIT [HOMEOPATHICS] [Suspect]
     Active Substance: HOMEOPATHICS
  3. BORRELIA BABESIA HOMOCHORD [HOMEOPATHICS] [Suspect]
     Active Substance: HOMEOPATHICS
  4. EBV SYMPTOMS RELIEF KIT [HOMEOPATHICS] [Suspect]
     Active Substance: HOMEOPATHICS
  5. BARTONELLA SYMPTOM RELIEF KIT [HOMEOPATHICS] [Suspect]
     Active Substance: HOMEOPATHICS
  6. EBV HOMOCHORD [HOMEOPATHICS] [Suspect]
     Active Substance: HOMEOPATHICS

REACTIONS (2)
  - Muscle spasms [None]
  - Musculoskeletal disorder [None]

NARRATIVE: CASE EVENT DATE: 20200130
